FAERS Safety Report 5441333-X (Version None)
Quarter: 2007Q3

REPORT INFORMATION
  Report Type: 
  Country: None (occurrence: None)
  Receive Date: 20070903
  Receipt Date: 20070824
  Transmission Date: 20080115
  Serious: Yes (Hospitalization)
  Sender: FDA-Public Use
  Company Number: PHBS2007GR14269

PATIENT
  Age: 56 Year
  Sex: Male

DRUGS (4)
  1. CLOZAPINE [Suspect]
     Indication: BIPOLAR I DISORDER
     Dosage: 500 MG/DAY
  2. HALOPERIDOL [Concomitant]
     Dosage: 25 MG/DAY
  3. BIPERIDEN HYDROCHLORIDE TAB [Concomitant]
     Dosage: 6 MG/DAY
  4. VALPROATE SODIUM [Concomitant]
     Dosage: 1000 MG/DAY

REACTIONS (2)
  - DROP ATTACKS [None]
  - FALL [None]
